FAERS Safety Report 23051382 (Version 1)
Quarter: 2023Q4

REPORT INFORMATION
  Report Type: Spontaneous
  Country: US (occurrence: None)
  Receive Date: 20231009
  Receipt Date: 20231009
  Transmission Date: 20240110
  Serious: Yes (Other)
  Sender: FDA-Public Use
  Company Number: None

PATIENT
  Age: 22 Year
  Sex: Female
  Weight: 107 kg

DRUGS (1)
  1. WAKIX [Suspect]
     Active Substance: PITOLISANT HYDROCHLORIDE
     Indication: Narcolepsy
     Dosage: FREQUENCY : DAILY;?
     Route: 048
     Dates: start: 20230101, end: 20230906

REACTIONS (5)
  - Amenorrhoea [None]
  - Abdominal pain lower [None]
  - Weight increased [None]
  - Chest pain [None]
  - Blood cholesterol increased [None]

NARRATIVE: CASE EVENT DATE: 20230830
